FAERS Safety Report 8238387 (Version 5)
Quarter: 2012Q4

REPORT INFORMATION
  Report Type: 
  Country: US (occurrence: US)
  Receive Date: 20111109
  Receipt Date: 20121108
  Transmission Date: 20130627
  Serious: Yes (Hospitalization, Other)
  Sender: FDA-Public Use
  Company Number: US-ASTRAZENECA-2011SE65867

PATIENT
  Age: 56 Year
  Sex: Female

DRUGS (3)
  1. NEXIUM [Suspect]
     Route: 048
  2. ARIMIDEX [Suspect]
     Route: 048
  3. UNSPECIFIED INGREDIENT [Suspect]
     Indication: BREAST CANCER FEMALE
     Dosage: EVERY DAY
     Route: 065

REACTIONS (8)
  - Breast cancer [Unknown]
  - Malaise [Unknown]
  - Adverse event [Unknown]
  - Cellulitis [Unknown]
  - Dizziness [Unknown]
  - Drug hypersensitivity [Unknown]
  - Vomiting [Unknown]
  - Rash [None]
